FAERS Safety Report 25201954 (Version 1)
Quarter: 2025Q2

REPORT INFORMATION
  Report Type: Report from Study
  Country: US (occurrence: US)
  Receive Date: 20250416
  Receipt Date: 20250416
  Transmission Date: 20250717
  Serious: No
  Sender: SUNOVION
  Company Number: US-SUMITOMO PHARMA SWITZERLAND GMBH-2025SPA003466

PATIENT

DRUGS (2)
  1. ORGOVYX [Suspect]
     Active Substance: RELUGOLIX
     Indication: Prostate cancer
     Route: 048
     Dates: start: 20240219, end: 20240219
  2. ORGOVYX [Suspect]
     Active Substance: RELUGOLIX
     Dosage: 120 MG, QD
     Route: 048
     Dates: start: 20240220

REACTIONS (7)
  - Fluid retention [Recovered/Resolved]
  - Dehydration [Recovered/Resolved]
  - Dysuria [Recovering/Resolving]
  - Anal pruritus [Recovering/Resolving]
  - Glycosuria [Unknown]
  - Urinary tract infection [Recovering/Resolving]
  - Blood glucose increased [Unknown]
